FAERS Safety Report 4998729-X (Version None)
Quarter: 2006Q2

REPORT INFORMATION
  Report Type: 
  Country: None (occurrence: None)
  Receive Date: 20060508
  Receipt Date: 20060424
  Transmission Date: 20061013
  Serious: Yes (Life-Threatening, Hospitalization)
  Sender: FDA-Public Use
  Company Number: JP-2005-023617

PATIENT
  Age: 30 Year
  Sex: Female
  Weight: 55 kg

DRUGS (4)
  1. BETAFERON (INTERFERON BETA - 1B) INJECTION, 250UG [Suspect]
     Indication: RELAPSING-REMITTING MULTIPLE SCLEROSIS
     Dosage: 8 MIU, EVERY 2D, SUBCUTANEOUS
     Route: 058
     Dates: start: 20050301, end: 20051016
  2. VOLTAREN [Suspect]
     Indication: ARTHRALGIA
     Dosage: 25 MG, 1X/DAY, ORAL
     Route: 048
     Dates: start: 20050927, end: 20051016
  3. FAMOTIDINE [Concomitant]
  4. GASTROM (ECABET MONOSODIUM) [Concomitant]

REACTIONS (20)
  - ARTHRALGIA [None]
  - CEREBRAL CYST [None]
  - COAGULATION TEST ABNORMAL [None]
  - DISEASE RECURRENCE [None]
  - ERYTHEMA [None]
  - HEADACHE [None]
  - HEPATIC FAILURE [None]
  - HEPATIC FIBROSIS [None]
  - HEPATIC STEATOSIS [None]
  - HEPATITIS [None]
  - LIVER DISORDER [None]
  - MALAISE [None]
  - MULTIPLE SCLEROSIS RELAPSE [None]
  - NASOPHARYNGITIS [None]
  - PALLOR [None]
  - PLATELET COUNT DECREASED [None]
  - PROTHROMBIN TIME PROLONGED [None]
  - RASH PAPULAR [None]
  - RASH PRURITIC [None]
  - UPPER RESPIRATORY TRACT INFLAMMATION [None]
